FAERS Safety Report 7794734-9 (Version None)
Quarter: 2011Q4

REPORT INFORMATION
  Report Type: 
  Country: None (occurrence: None)
  Receive Date: 20111004
  Receipt Date: 20110922
  Transmission Date: 20120403
  Serious: Yes (Death)
  Sender: FDA-Public Use
  Company Number: CA-SANOFI-AVENTIS-2011SA048195

PATIENT
  Age: 79 Year
  Sex: Male
  Weight: 70 kg

DRUGS (15)
  1. TAMSULOSIN HYDROCHLORIDE [Concomitant]
     Route: 065
  2. ADALAT CC [Concomitant]
     Route: 065
  3. ROSUVASTATIN [Concomitant]
     Route: 065
  4. DILTIAZEM HCL [Concomitant]
     Route: 065
  5. PANTOPRAZOLE [Concomitant]
     Route: 065
     Dates: start: 20101222
  6. FUROSEMIDE [Concomitant]
     Route: 065
  7. SPIRIVA [Concomitant]
     Route: 048
  8. CODEINE CONTIN [Concomitant]
     Route: 065
  9. FINASTERIDE [Concomitant]
     Route: 065
  10. NIFEDIPINE [Concomitant]
     Route: 065
  11. IMDUR [Concomitant]
     Route: 065
  12. WARFARIN SODIUM [Concomitant]
     Route: 065
  13. METFORMIN HCL [Concomitant]
     Route: 065
  14. DRONEDARONE HCL [Suspect]
     Indication: ATRIAL FIBRILLATION
     Route: 048
     Dates: start: 20101222
  15. ASPIRIN [Concomitant]
     Route: 065

REACTIONS (1)
  - DEATH [None]
